FAERS Safety Report 12001758 (Version 1)
Quarter: 2016Q1

REPORT INFORMATION
  Report Type: Report from Study
  Country: US (occurrence: US)
  Receive Date: 20160204
  Receipt Date: 20160204
  Transmission Date: 20160526
  Serious: No
  Sender: FDA-Public Use
  Company Number: US-ABBVIE-15K-163-1432078-00

PATIENT
  Age: 31 Year
  Sex: Male

DRUGS (2)
  1. HUMIRA [Suspect]
     Active Substance: ADALIMUMAB
     Indication: PSORIASIS
     Route: 065
     Dates: start: 2010
  2. AUGMENTIN [Suspect]
     Active Substance: AMOXICILLIN\CLAVULANATE POTASSIUM
     Indication: BACTERIAL INFECTION
     Route: 065
     Dates: start: 20150715, end: 20150717

REACTIONS (8)
  - Nasal congestion [Unknown]
  - Bacterial infection [Not Recovered/Not Resolved]
  - Gingival blister [Unknown]
  - Drug hypersensitivity [Not Recovered/Not Resolved]
  - Oral mucosal blistering [Unknown]
  - Pyrexia [Unknown]
  - Hyperhidrosis [Unknown]
  - Oropharyngeal pain [Unknown]

NARRATIVE: CASE EVENT DATE: 20150711
